FAERS Safety Report 4741146-8 (Version None)
Quarter: 2005Q3

REPORT INFORMATION
  Report Type: 
  Country: None (occurrence: None)
  Receive Date: 20050808
  Receipt Date: 20050729
  Transmission Date: 20060218
  Serious: Yes (Hospitalization, Other)
  Sender: FDA-Public Use
  Company Number: 2005108619

PATIENT
  Age: 50 Year
  Sex: Female

DRUGS (19)
  1. LIPITOR [Suspect]
     Indication: BLOOD CHOLESTEROL INCREASED
     Dosage: 80 MG (80 MG, 1 IN 1 D), ORAL
     Route: 048
  2. GLUCOTROL XL [Suspect]
     Indication: DIABETES MELLITUS
     Dosage: 10 MG (10 MG, 1 IN 1 D), ORAL
     Route: 048
     Dates: start: 19850101
  3. ALPRAZOLAM [Suspect]
     Indication: ANXIETY
     Dosage: (1 MG, 2 TO 3 TIMES DAILY), ORAL
     Route: 048
  4. ALPRAZOLAM [Suspect]
     Indication: PANIC ATTACK
     Dosage: (1 MG, 2 TO 3 TIMES DAILY), ORAL
     Route: 048
  5. MORPHINE [Suspect]
     Indication: BACK PAIN
     Dosage: 120 MG (60 MG, 2 IN 1 D), ORAL
     Route: 048
  6. ACTOS [Concomitant]
  7. PROVIGIL [Concomitant]
  8. HYDROCODONE (HYDROCODONE) [Concomitant]
  9. ALBUTEROL [Concomitant]
  10. ISOSORBIDE (ISOSORBIDE) [Concomitant]
  11. ENALAPRIL MALEATE [Concomitant]
  12. METOPROLOL TARTRATE [Concomitant]
  13. BACLOFEN [Concomitant]
  14. LEVOTHYROXINE SODIUM [Concomitant]
  15. FUROSEMIDE [Concomitant]
  16. ACETYLSALICYLIC ACID SRT [Concomitant]
  17. COMBIVENT [Concomitant]
  18. FORADIL [Concomitant]
  19. PLAVIX [Concomitant]

REACTIONS (22)
  - ANXIETY [None]
  - ASTHMA [None]
  - BACK PAIN [None]
  - BLISTER [None]
  - BLOOD CHOLESTEROL INCREASED [None]
  - BRONCHITIS CHRONIC [None]
  - CARDIAC FAILURE CONGESTIVE [None]
  - CAROTID ARTERY OCCLUSION [None]
  - CATARACT [None]
  - CHRONIC OBSTRUCTIVE PULMONARY DISEASE [None]
  - EMPHYSEMA [None]
  - ERYTHEMA [None]
  - FLUID RETENTION [None]
  - HYPERTENSION [None]
  - HYPOTENSION [None]
  - INTERVERTEBRAL DISC PROTRUSION [None]
  - LOSS OF CONSCIOUSNESS [None]
  - LUMBAR SPINAL STENOSIS [None]
  - MYOCARDIAL INFARCTION [None]
  - OEDEMA PERIPHERAL [None]
  - PANIC ATTACK [None]
  - WEIGHT FLUCTUATION [None]
